FAERS Safety Report 4538817-5 (Version None)
Quarter: 2004Q4

REPORT INFORMATION
  Report Type: 
  Country: None (occurrence: None)
  Receive Date: 20041222
  Receipt Date: 20041209
  Transmission Date: 20050328
  Serious: Yes (Hospitalization, Other)
  Sender: FDA-Public Use
  Company Number: USA041285770

PATIENT
  Age: 51 Year
  Sex: Male
  Weight: 130 kg

DRUGS (1)
  1. HUMALOG [Suspect]
     Indication: DIABETES MELLITUS
     Dosage: 120 U DAY
     Dates: start: 20040101

REACTIONS (8)
  - BEDRIDDEN [None]
  - BLOOD GLUCOSE DECREASED [None]
  - BLOOD GLUCOSE INCREASED [None]
  - DIFFICULTY IN WALKING [None]
  - PHARMACEUTICAL PRODUCT COMPLAINT [None]
  - RASH MACULAR [None]
  - SKIN DISCOLOURATION [None]
  - THROMBOSIS [None]
